FAERS Safety Report 8224738-3 (Version None)
Quarter: 2012Q1

REPORT INFORMATION
  Report Type: 
  Country: None (occurrence: None)
  Receive Date: 20120321
  Receipt Date: 20120315
  Transmission Date: 20120608
  Serious: Yes (Hospitalization)
  Sender: FDA-Public Use
  Company Number: PHHO2012US004334

PATIENT
  Sex: Male
  Weight: 102.4 kg

DRUGS (20)
  1. TAXOTERE [Concomitant]
     Indication: PROSTATE CANCER METASTATIC
     Dosage: 75 MG/M2, UNK (ROUTE IVPB)
     Route: 042
     Dates: start: 20120305
  2. ADVAIR DISKUS 100/50 [Concomitant]
  3. ARTHROTEC [Concomitant]
  4. LUPRON [Concomitant]
  5. ZOMETA [Concomitant]
  6. AFINITOR [Suspect]
     Indication: PROSTATE CANCER METASTATIC
     Dosage: 2.5 MG, UNK
     Route: 048
     Dates: start: 20120306, end: 20120312
  7. BEVACIZUMAB [Concomitant]
     Indication: PROSTATE CANCER METASTATIC
     Dosage: 15 MG/KG, UNK (ROUTE IVPB)
     Dates: start: 20120305
  8. LEXAPRO [Concomitant]
  9. COQ10 [Concomitant]
  10. COLCHICINE [Concomitant]
  11. ASACOL [Concomitant]
  12. AMBIEN [Concomitant]
  13. M.V.I. [Concomitant]
  14. TOPAMAX [Concomitant]
  15. NEURONTIN [Concomitant]
  16. PREDNISONE [Concomitant]
  17. DECADRON [Concomitant]
  18. SYNTHROID [Concomitant]
  19. FISH OIL [Concomitant]
  20. PROSCAR [Concomitant]

REACTIONS (1)
  - FEBRILE NEUTROPENIA [None]
